FAERS Safety Report 24934985 (Version 2)
Quarter: 2025Q1

REPORT INFORMATION
  Report Type: Spontaneous
  Country: DE (occurrence: DE)
  Receive Date: 20250206
  Receipt Date: 20250211
  Transmission Date: 20250408
  Serious: Yes (Hospitalization)
  Sender: AMGEN
  Company Number: DE-ROCHE-10000173218

PATIENT
  Age: 78 Year
  Sex: Male
  Weight: 97 kg

DRUGS (32)
  1. BEVACIZUMAB [Suspect]
     Active Substance: BEVACIZUMAB
     Indication: Hepatocellular carcinoma
     Dosage: ON 19-DEC-2024, PATIENT RECEIVED THE MOST RECENT DOSE OF STUDY DRUG PRIOR.DOSE (1455 MG)LAST STUDY D
     Route: 040
     Dates: start: 20240321
  2. BEVACIZUMAB [Suspect]
     Active Substance: BEVACIZUMAB
     Dosage: ON 19-DEC-2024, PATIENT RECEIVED THE MOST RECENT DOSE OF STUDY DRUG PRIOR TO AE/SAE.
     Route: 040
  3. TIRAGOLUMAB [Concomitant]
     Active Substance: TIRAGOLUMAB
     Indication: Hepatocellular carcinoma
     Dosage: ON 19-DEC-2024, PATIENT RECEIVED THE MOST RECENT DOSE OF STUDY DRUG PRIOR TO AE/SAR.
     Route: 040
     Dates: start: 20240321
  4. ATEZOLIZUMAB [Concomitant]
     Active Substance: ATEZOLIZUMAB
     Indication: Hepatocellular carcinoma
     Dosage: ON 19-DEC-2024, PATIENT RECEIVED THE MOST RECENT DOSE OF STUDY DRUG PRIOR TO AE/SAE.DOSE (1200 MG)LA
     Route: 040
     Dates: start: 20240321
  5. FUROSEMIDE [Concomitant]
     Active Substance: FUROSEMIDE
     Dosage: 40 MILLIGRAM, QD
     Route: 048
     Dates: start: 2004, end: 20250103
  6. SITAGLIPTIN [Concomitant]
     Active Substance: SITAGLIPTIN
     Route: 048
     Dates: start: 1994, end: 20250103
  7. SITAGLIPTIN [Concomitant]
     Active Substance: SITAGLIPTIN
     Route: 048
     Dates: start: 20250114
  8. METFORMIN HYDROCHLORIDE [Concomitant]
     Active Substance: METFORMIN HYDROCHLORIDE
     Indication: Product used for unknown indication
     Route: 048
     Dates: start: 1994, end: 20250103
  9. METFORMIN HYDROCHLORIDE [Concomitant]
     Active Substance: METFORMIN HYDROCHLORIDE
     Route: 048
     Dates: start: 20250114
  10. SOLIFENACIN SUCCINATE [Concomitant]
     Active Substance: SOLIFENACIN SUCCINATE
     Dosage: 5 MILLIGRAM, QD
     Route: 048
     Dates: start: 1999, end: 20250103
  11. SOLIFENACIN SUCCINATE [Concomitant]
     Active Substance: SOLIFENACIN SUCCINATE
     Dosage: 5 MILLIGRAM, QD
     Route: 048
     Dates: start: 20250113
  12. AMLODIPINE BESYLATE [Concomitant]
     Active Substance: AMLODIPINE BESYLATE
     Dosage: 5 MILLIGRAM, QD
     Route: 048
     Dates: start: 20240318, end: 20250103
  13. AMLODIPINE BESYLATE [Concomitant]
     Active Substance: AMLODIPINE BESYLATE
     Dosage: 5 MILLIGRAM, QD
     Route: 048
     Dates: start: 20250107, end: 20250107
  14. AMLODIPINE BESYLATE [Concomitant]
     Active Substance: AMLODIPINE BESYLATE
     Dosage: 5 MILLIGRAM, QD
     Route: 048
     Dates: start: 20250114
  15. VALSARTAN [Concomitant]
     Active Substance: VALSARTAN
     Dosage: 80 MILLIGRAM, QD
     Route: 048
     Dates: start: 20240318, end: 20250103
  16. VALSARTAN [Concomitant]
     Active Substance: VALSARTAN
     Dosage: 80 MILLIGRAM, QD
     Route: 048
     Dates: start: 20250114
  17. HYDROCHLOROTHIAZIDE [Concomitant]
     Active Substance: HYDROCHLOROTHIAZIDE
     Indication: Bone marrow oedema
     Dosage: 12.5 MILLIGRAM, QD
     Route: 048
     Dates: start: 20240410, end: 20250103
  18. HYDROCHLOROTHIAZIDE [Concomitant]
     Active Substance: HYDROCHLOROTHIAZIDE
     Dosage: 12.5 MILLIGRAM, QD
     Route: 048
     Dates: start: 20250114
  19. LOPERAMIDE [Concomitant]
     Active Substance: LOPERAMIDE
     Indication: Diarrhoea
     Route: 048
     Dates: start: 20240513
  20. CHLORHEXIDINE HYDROCHLORIDE\DEXAMETHASONE\NYSTATIN [Concomitant]
     Active Substance: CHLORHEXIDINE HYDROCHLORIDE\DEXAMETHASONE\NYSTATIN
     Indication: Prophylaxis
     Route: 062
     Dates: start: 20240704
  21. CLEMASTINE FUMARATE [Concomitant]
     Active Substance: CLEMASTINE FUMARATE
     Indication: Rash
     Dosage: 1.34 MILLIGRAM, QD
     Route: 048
     Dates: start: 20240724
  22. TACE [Concomitant]
     Active Substance: CHLOROTRIANISENE
     Indication: Neoplasm malignant
     Route: 065
     Dates: start: 20191206
  23. TACE [Concomitant]
     Active Substance: CHLOROTRIANISENE
     Route: 065
     Dates: start: 20200107
  24. TACE [Concomitant]
     Active Substance: CHLOROTRIANISENE
     Route: 065
     Dates: start: 20200520
  25. INNOHEP [Concomitant]
     Active Substance: TINZAPARIN SODIUM
     Route: 058
     Dates: start: 20250107, end: 20250107
  26. INNOHEP [Concomitant]
     Active Substance: TINZAPARIN SODIUM
     Dosage: 4500 INTERNATIONAL UNIT, QD
     Route: 058
     Dates: start: 20250108, end: 20250112
  27. INNOHEP [Concomitant]
     Active Substance: TINZAPARIN SODIUM
     Dosage: 4500 INTERNATIONAL UNIT, QD
     Route: 058
     Dates: start: 20250103, end: 20250105
  28. PANTOPRAZOLE SODIUM [Concomitant]
     Active Substance: PANTOPRAZOLE SODIUM
     Dosage: 40 MILLIGRAM, QD
     Route: 048
     Dates: start: 20250106, end: 20250106
  29. BISOPROLOL [Concomitant]
     Active Substance: BISOPROLOL
     Dosage: 10 MILLIGRAM, QD
     Route: 048
     Dates: start: 20250107, end: 20250107
  30. BISOPROLOL [Concomitant]
     Active Substance: BISOPROLOL
     Dosage: 10 MILLIGRAM, QD
     Route: 048
     Dates: start: 20250114
  31. Fresubin energy [Concomitant]
     Indication: Weight decreased
     Dosage: 200 MILLILITER, QD
     Route: 048
     Dates: start: 20240510, end: 20250103
  32. SODIUM PICOSULFATE [Concomitant]
     Active Substance: SODIUM PICOSULFATE
     Dosage: DOSE: OTHER
     Route: 048
     Dates: start: 20250107, end: 20250107

REACTIONS (2)
  - Sepsis [Recovered/Resolved]
  - Off label use [Unknown]

NARRATIVE: CASE EVENT DATE: 20250103
